FAERS Safety Report 23784395 (Version 2)
Quarter: 2024Q2

REPORT INFORMATION
  Report Type: Spontaneous
  Country: PR (occurrence: PR)
  Receive Date: 20240425
  Receipt Date: 20240501
  Transmission Date: 20240716
  Serious: Yes (Other)
  Sender: FDA-Public Use
  Company Number: None

PATIENT
  Age: 77 Year
  Sex: Male

DRUGS (1)
  1. CLOPIDOGREL BISULFATE [Suspect]
     Active Substance: CLOPIDOGREL BISULFATE
     Indication: Gait disturbance
     Dosage: UNK
     Route: 048

REACTIONS (10)
  - Neuropathy peripheral [Unknown]
  - Nerve injury [Unknown]
  - Gait disturbance [Unknown]
  - Nerve compression [Unknown]
  - Haematoma muscle [Unknown]
  - Pain in extremity [Unknown]
  - Asthenia [Unknown]
  - Pain [Unknown]
  - Muscle oedema [Unknown]
  - Muscle strain [Unknown]
